FAERS Safety Report 12988429 (Version 1)
Quarter: 2016Q4

REPORT INFORMATION
  Report Type: Report from Study
  Country: US (occurrence: US)
  Receive Date: 20161130
  Receipt Date: 20161130
  Transmission Date: 20170207
  Serious: Yes (Other)
  Sender: FDA-Public Use
  Company Number: US-ROCHE-1861946

PATIENT
  Age: 59 Year
  Sex: Female
  Weight: 95.5 kg

DRUGS (2)
  1. BEVACIZUMAB [Suspect]
     Active Substance: BEVACIZUMAB
     Indication: OVARIAN EPITHELIAL CANCER
     Dosage: ALSO RECEIVED ON 17/DEC/2015, 07/JAN/2016, 25/FEB/2016, 17/MAR/2016, 12/APR/2016, 03/MAY/2016, 24/MA
     Route: 065
  2. ABT-888 [Suspect]
     Active Substance: VELIPARIB
     Indication: OVARIAN EPITHELIAL CANCER
     Dosage: ALSO RECEIVED ON 25/NOV/2015, 17/DEC/2015, 07/JAN/2016, 25/FEB/2016, 17/MAR/2016
     Route: 065

REACTIONS (4)
  - White blood cell count decreased [Unknown]
  - Anaemia [Unknown]
  - Neutrophil count decreased [Unknown]
  - Platelet count decreased [Unknown]
